FAERS Safety Report 22528354 (Version 1)
Quarter: 2023Q2

REPORT INFORMATION
  Report Type: Report from Study
  Country: US (occurrence: None)
  Receive Date: 20230607
  Receipt Date: 20230607
  Transmission Date: 20230721
  Serious: Yes (Other)
  Sender: FDA-Public Use
  Company Number: 2023A128960

PATIENT
  Sex: Female

DRUGS (1)
  1. TAGRISSO [Suspect]
     Active Substance: OSIMERTINIB
     Indication: Lung neoplasm malignant
     Route: 048

REACTIONS (6)
  - Dehydration [Unknown]
  - Diarrhoea [Unknown]
  - Night sweats [Unknown]
  - Decreased appetite [Recovered/Resolved]
  - Pneumonia [Unknown]
  - Pyrexia [Unknown]
